FAERS Safety Report 25802008 (Version 2)
Quarter: 2025Q4

REPORT INFORMATION
  Report Type: Spontaneous
  Country: US (occurrence: US)
  Receive Date: 20250915
  Receipt Date: 20251103
  Transmission Date: 20260118
  Serious: Yes (Other)
  Sender: KEDRION
  Company Number: US-KEDRION-010463

PATIENT
  Age: 43 Year
  Sex: Male

DRUGS (6)
  1. HUMAN IMMUNOGLOBULIN G [Suspect]
     Active Substance: HUMAN IMMUNOGLOBULIN G
     Indication: Ocular pemphigoid
     Dosage: TIME INTERVAL: 0.33333333 MONTHS: DOSAGE: 2 G/KG 2 G/KG, DIVIDED OVER 3 INFUSIONS PER MONTH
     Route: 042
  2. RITUXIMAB [Concomitant]
     Active Substance: RITUXIMAB
     Indication: Ocular pemphigoid
     Dosage: TWICE-YEARLY 375 MG/M2 RITUXIMAB BOOSTER
     Route: 065
  3. RITUXIMAB [Concomitant]
     Active Substance: RITUXIMAB
     Indication: Ocular pemphigoid
     Dosage: HIS DOSING FREQUENCY WAS ADJUSTED TO EVERY 4-MONTH DOSING RESULTING IN COMPLETE REMISSION.
     Route: 065
  4. DOXYCYCLINE [Concomitant]
     Active Substance: DOXYCYCLINE
     Indication: Ocular pemphigoid
     Route: 065
  5. MYCOPHENOLATE MOFETIL [Concomitant]
     Active Substance: MYCOPHENOLATE MOFETIL
     Indication: Ocular pemphigoid
     Route: 065
  6. RANIBIZUMAB [Concomitant]
     Active Substance: RANIBIZUMAB
     Indication: Macular oedema
     Dosage: INTRAVITREAL INJECTION
     Route: 050

REACTIONS (4)
  - Retinal vein occlusion [Recovered/Resolved with Sequelae]
  - Superficial vein thrombosis [Not Recovered/Not Resolved]
  - Off label use [Unknown]
  - Therapy responder [Unknown]
